FAERS Safety Report 5481058-8 (Version None)
Quarter: 2007Q4

REPORT INFORMATION
  Report Type: 
  Country: None (occurrence: None)
  Receive Date: 20071009
  Receipt Date: 20070924
  Transmission Date: 20080405
  Serious: Yes (Hospitalization)
  Sender: FDA-Public Use
  Company Number: FI-PFIZER INC-2007082994

PATIENT
  Sex: Female

DRUGS (4)
  1. VIRACEPT [Suspect]
     Indication: HIV INFECTION
     Dosage: DAILY DOSE:250MG
     Route: 048
     Dates: start: 20030618, end: 20070611
  2. SAQUINAVIR [Suspect]
     Indication: HIV INFECTION
     Dosage: DAILY DOSE:500MG
     Route: 048
     Dates: start: 20070611
  3. RITONAVIR [Suspect]
     Indication: HIV INFECTION
     Dosage: DAILY DOSE:100MG
     Route: 048
  4. COMBIVIR [Suspect]
     Indication: HIV INFECTION
     Dosage: DAILY DOSE:450MG
     Route: 048

REACTIONS (1)
  - ABORTION SPONTANEOUS [None]
